FAERS Safety Report 14058233 (Version 1)
Quarter: 2017Q4

REPORT INFORMATION
  Report Type: Spontaneous
  Country: US (occurrence: US)
  Receive Date: 20171006
  Receipt Date: 20171006
  Transmission Date: 20180321
  Serious: No
  Sender: FDA-Public Use
  Company Number: US-009507513-1710USA002374

PATIENT
  Age: 59 Year
  Sex: Male
  Weight: 91 kg

DRUGS (16)
  1. VANCOMYCIN [Concomitant]
     Active Substance: VANCOMYCIN
     Indication: URINARY TRACT INFECTION
     Route: 042
  2. DIAZEPAM. [Concomitant]
     Active Substance: DIAZEPAM
  3. ATENOLOL. [Concomitant]
     Active Substance: ATENOLOL
  4. LANZOPRAZOL [Concomitant]
     Active Substance: LANSOPRAZOLE
  5. RISPERIDONE. [Concomitant]
     Active Substance: RISPERIDONE
  6. BUPROPION HYDROCHLORIDE. [Concomitant]
     Active Substance: BUPROPION HYDROCHLORIDE
  7. OXYCODONE [Concomitant]
     Active Substance: OXYCODONE
  8. OXYBUTYNIN CHLORIDE. [Concomitant]
     Active Substance: OXYBUTYNIN CHLORIDE
  9. LEVOTHYROXINE SODIUM. [Concomitant]
     Active Substance: LEVOTHYROXINE SODIUM
     Route: 054
  10. INVANZ [Suspect]
     Active Substance: ERTAPENEM SODIUM
     Indication: URINARY TRACT INFECTION
     Dosage: 1000 MG, DAILY
     Route: 042
  11. METHADONE HYDROCHLORIDE. [Concomitant]
     Active Substance: METHADONE HYDROCHLORIDE
  12. BACLOFEN. [Concomitant]
     Active Substance: BACLOFEN
  13. PREGABALIN. [Concomitant]
     Active Substance: PREGABALIN
  14. METRONIDAZOLE. [Concomitant]
     Active Substance: METRONIDAZOLE
  15. ZOCOR [Concomitant]
     Active Substance: SIMVASTATIN
  16. PRIMIDONE. [Concomitant]
     Active Substance: PRIMIDONE

REACTIONS (1)
  - Hallucination, visual [Recovered/Resolved]
